FAERS Safety Report 25326214 (Version 2)
Quarter: 2025Q2

REPORT INFORMATION
  Report Type: Spontaneous
  Country: PL (occurrence: PL)
  Receive Date: 20250516
  Receipt Date: 20250603
  Transmission Date: 20250716
  Serious: Yes (Other)
  Sender: SANDOZ
  Company Number: PL-AMGEN-POLSP2025086572

PATIENT
  Age: 11 Year
  Sex: Male

DRUGS (2)
  1. ADALIMUMAB [Suspect]
     Active Substance: ADALIMUMAB
     Indication: Crohn^s disease
     Route: 065
     Dates: start: 202208
  2. ADALIMUMAB [Suspect]
     Active Substance: ADALIMUMAB
     Route: 065
     Dates: start: 202308

REACTIONS (5)
  - Enterocutaneous fistula [Unknown]
  - Foreign body in gastrointestinal tract [Recovered/Resolved]
  - Abscess [Recovered/Resolved]
  - Lymphadenopathy [Unknown]
  - Fistula inflammation [Recovered/Resolved]
